FAERS Safety Report 24703943 (Version 1)
Quarter: 2024Q4

REPORT INFORMATION
  Report Type: Spontaneous
  Country: FR (occurrence: FR)
  Receive Date: 20241206
  Receipt Date: 20241206
  Transmission Date: 20250114
  Serious: Yes (Hospitalization, Disabling, Other)
  Sender: ALEXION PHARMACEUTICALS
  Company Number: None

PATIENT
  Age: 38 Year

DRUGS (6)
  1. TICAGRELOR [Suspect]
     Active Substance: TICAGRELOR
     Dosage: NOT ADMINISTERED
  2. TICAGRELOR [Suspect]
     Active Substance: TICAGRELOR
     Dosage: NOT ADMINISTERED
  3. TICAGRELOR [Suspect]
     Active Substance: TICAGRELOR
     Dosage: NOT ADMINISTERED
  4. TICAGRELOR [Suspect]
     Active Substance: TICAGRELOR
     Dosage: NOT ADMINISTERED
  5. KARDEGIC [Suspect]
     Active Substance: ASPIRIN DL-LYSINE
     Dosage: NOT ADMINISTERED
  6. KARDEGIC [Suspect]
     Active Substance: ASPIRIN DL-LYSINE
     Dosage: NOT ADMINISTERED

REACTIONS (2)
  - Vascular stent thrombosis [Recovered/Resolved]
  - Product dose omission in error [Recovered/Resolved]
